FAERS Safety Report 7017858-2 (Version None)
Quarter: 2010Q3

REPORT INFORMATION
  Report Type: 
  Country: None (occurrence: None)
  Receive Date: 20100909
  Receipt Date: 20100629
  Transmission Date: 20110219
  Serious: No
  Sender: FDA-Public Use
  Company Number: 2010SP036824

PATIENT
  Age: 62 Year
  Sex: Male

DRUGS (1)
  1. SAPHRIS [Suspect]
     Indication: MANIA
     Dosage: 10 MG
     Dates: start: 20100601

REACTIONS (1)
  - FEELING ABNORMAL [None]
